FAERS Safety Report 21301719 (Version 1)
Quarter: 2022Q3

REPORT INFORMATION
  Report Type: Spontaneous
  Country: US (occurrence: US)
  Receive Date: 20220907
  Receipt Date: 20220907
  Transmission Date: 20221027
  Serious: Yes (Other)
  Sender: FDA-Public Use
  Company Number: US-NOVARTISPH-NVSC2022US197315

PATIENT
  Sex: Male

DRUGS (1)
  1. PREDNISOLONE ACETATE [Suspect]
     Active Substance: PREDNISOLONE ACETATE
     Indication: Product used for unknown indication
     Dosage: 1 DRP, QID (1%)
     Route: 047

REACTIONS (4)
  - Seizure [Unknown]
  - Vision blurred [Unknown]
  - Eye infection bacterial [Unknown]
  - Product delivery mechanism issue [Unknown]
